FAERS Safety Report 8722175 (Version 4)
Quarter: 2013Q3

REPORT INFORMATION
  Report Type: Spontaneous
  Country: US (occurrence: US)
  Receive Date: 20120814
  Receipt Date: 20130927
  Transmission Date: 20140515
  Serious: Yes (Hospitalization)
  Sender: FDA-Public Use
  Company Number: US-US-EMD SERONO, INC.-7153125

PATIENT
  Age: 66 Year
  Sex: Female
  Weight: 48 kg

DRUGS (4)
  1. REBIF [Suspect]
     Indication: MULTIPLE SCLEROSIS
     Route: 058
     Dates: start: 20120423, end: 201207
  2. REBIF [Suspect]
     Route: 058
     Dates: end: 201212
  3. REBIF [Suspect]
     Route: 058
     Dates: start: 201305
  4. REBIF [Suspect]
     Route: 058
     Dates: start: 20130820

REACTIONS (5)
  - Cerebrovascular accident [Unknown]
  - Hypertension [Unknown]
  - Blood cholesterol increased [Unknown]
  - Monarthritis [Unknown]
  - Electrocardiogram abnormal [Recovered/Resolved]
